FAERS Safety Report 7340502-1 (Version None)
Quarter: 2011Q1

REPORT INFORMATION
  Report Type: 
  Country: None (occurrence: None)
  Receive Date: 20110301
  Receipt Date: 20110216
  Transmission Date: 20110831
  Serious: Yes (Hospitalization)
  Sender: FDA-Public Use
  Company Number: 027728

PATIENT
  Sex: Male
  Weight: 95.3 kg

DRUGS (1)
  1. CIMZIA [Suspect]
     Indication: CROHN'S DISEASE
     Dosage: (400 MG 1X/MONTH SUBCUTANEOUS)
     Route: 058
     Dates: start: 20090101

REACTIONS (4)
  - FEELING DRUNK [None]
  - MENTAL DISORDER [None]
  - HEADACHE [None]
  - DIZZINESS [None]
